FAERS Safety Report 13532117 (Version 2)
Quarter: 2017Q2

REPORT INFORMATION
  Report Type: Spontaneous
  Country: US (occurrence: US)
  Receive Date: 20170510
  Receipt Date: 20170605
  Transmission Date: 20170830
  Serious: No
  Sender: FDA-Public Use
  Company Number: US-GLAXOSMITHKLINE-US2017066267

PATIENT
  Age: 65 Year
  Sex: Female

DRUGS (21)
  1. FUROSEMIDE. [Concomitant]
     Active Substance: FUROSEMIDE
  2. ASPIRIN. [Concomitant]
     Active Substance: ASPIRIN
  3. ARNUITY ELLIPTA [Suspect]
     Active Substance: FLUTICASONE FUROATE
     Indication: MULTIPLE ALLERGIES
     Dosage: 1 PUFF(S), QD
     Route: 055
     Dates: start: 201703
  4. MONTELUKAST [Suspect]
     Active Substance: MONTELUKAST SODIUM
  5. LEVEMIR [Concomitant]
     Active Substance: INSULIN DETEMIR
  6. METFORMIN [Concomitant]
     Active Substance: METFORMIN HYDROCHLORIDE
  7. ANORO ELLIPTA [Suspect]
     Active Substance: UMECLIDINIUM BROMIDE\VILANTEROL TRIFENATATE
     Indication: DYSPNOEA
  8. GLIMEPIRIDE. [Concomitant]
     Active Substance: GLIMEPIRIDE
  9. LEVOTHYROXINE. [Concomitant]
     Active Substance: LEVOTHYROXINE
  10. NOVOLOG [Concomitant]
     Active Substance: INSULIN ASPART
  11. PROAIR HFA [Concomitant]
     Active Substance: ALBUTEROL SULFATE
  12. AMLODIPINE [Concomitant]
     Active Substance: AMLODIPINE BESYLATE
  13. PANTOPRAZOLE SODIUM. [Concomitant]
     Active Substance: PANTOPRAZOLE SODIUM
  14. SPIRIVA RESPIMAT [Concomitant]
     Active Substance: TIOTROPIUM BROMIDE
  15. SPIRIVA [Concomitant]
     Active Substance: TIOTROPIUM BROMIDE MONOHYDRATE
  16. ANORO ELLIPTA [Suspect]
     Active Substance: UMECLIDINIUM BROMIDE\VILANTEROL TRIFENATATE
     Indication: MULTIPLE ALLERGIES
     Dosage: 1 PUFF(S), QD
     Route: 055
     Dates: start: 20170428
  17. ARNUITY ELLIPTA [Suspect]
     Active Substance: FLUTICASONE FUROATE
     Indication: DYSPNOEA
  18. ATENOLOL. [Concomitant]
     Active Substance: ATENOLOL
  19. FLUTICASONE. [Concomitant]
     Active Substance: FLUTICASONE
  20. ATORVASTATIN [Concomitant]
     Active Substance: ATORVASTATIN
  21. EFFIENT [Concomitant]
     Active Substance: PRASUGREL HYDROCHLORIDE

REACTIONS (3)
  - Medication error [Unknown]
  - Blood glucose increased [Not Recovered/Not Resolved]
  - Influenza [Unknown]

NARRATIVE: CASE EVENT DATE: 20170504
